FAERS Safety Report 9148932 (Version 1)
Quarter: 2013Q1

REPORT INFORMATION
  Report Type: Spontaneous
  Country: US (occurrence: US)
  Receive Date: 20130308
  Receipt Date: 20130308
  Transmission Date: 20140127
  Serious: No
  Sender: FDA-Public Use
  Company Number: US-BAYER-2013-029574

PATIENT
  Age: 85 Year
  Sex: Female
  Weight: 50 kg

DRUGS (4)
  1. ALEVE CAPLET/TABLET,MIDOL EXTENDED RELIEF CAPLET [Suspect]
     Dosage: 1 DF, QD
     Route: 048
     Dates: start: 201302, end: 20130304
  2. EXTRA STRENGTH BAYER PM [Concomitant]
  3. VITAMIN B12 (CYANOCOBALAMIN AND ANALOGUES) [Concomitant]
  4. VITAMIN E [Concomitant]

REACTIONS (1)
  - Feeling cold [Recovered/Resolved]
